FAERS Safety Report 13082179 (Version 3)
Quarter: 2018Q4

REPORT INFORMATION
  Report Type: Spontaneous
  Country: US (occurrence: US)
  Receive Date: 20170103
  Receipt Date: 20181029
  Transmission Date: 20190204
  Serious: Yes (Hospitalization)
  Sender: FDA-Public Use
  Company Number: US-PFIZER INC-2016278932

PATIENT
  Age: 77 Year
  Sex: Female
  Weight: 77 kg

DRUGS (2)
  1. XELJANZ [Suspect]
     Active Substance: TOFACITINIB CITRATE
     Indication: RHEUMATOID ARTHRITIS
     Dosage: 5 MG, ONE IN MORNING ONE IN NIGHT
     Route: 048
     Dates: start: 20160401, end: 2017
  2. XELJANZ [Suspect]
     Active Substance: TOFACITINIB CITRATE
     Indication: ARTHRITIS

REACTIONS (6)
  - Product dose omission [Unknown]
  - Alopecia [Not Recovered/Not Resolved]
  - Oesophageal ulcer [Unknown]
  - Renal disorder [Unknown]
  - Infectious colitis [Unknown]
  - Weight increased [Unknown]

NARRATIVE: CASE EVENT DATE: 201606
